FAERS Safety Report 6220130-1 (Version None)
Quarter: 2009Q2

REPORT INFORMATION
  Report Type: 
  Country: None (occurrence: None)
  Receive Date: 20090609
  Receipt Date: 20090525
  Transmission Date: 20091009
  Serious: No
  Sender: FDA-Public Use
  Company Number: JP-ABBOTT-08P-087-0492863-00

PATIENT
  Sex: Female
  Weight: 48 kg

DRUGS (1)
  1. HUMIRA [Suspect]
     Indication: RHEUMATOID ARTHRITIS
     Route: 058
     Dates: start: 20081122

REACTIONS (4)
  - GASTROINTESTINAL DISORDER [None]
  - RASH [None]
  - TONSILLAR HYPERTROPHY [None]
  - TONSILLITIS [None]
